FAERS Safety Report 6551467-4 (Version None)
Quarter: 2010Q1

REPORT INFORMATION
  Report Type: 
  Country: None (occurrence: None)
  Receive Date: 20100126
  Receipt Date: 20100118
  Transmission Date: 20100710
  Serious: Yes (Other)
  Sender: FDA-Public Use
  Company Number: GB-MPIJNJ-2010-00860

PATIENT

DRUGS (1)
  1. VELCADE [Suspect]
     Indication: MULTIPLE MYELOMA
     Dosage: UNK
     Route: 065
     Dates: start: 20090907, end: 20091221

REACTIONS (3)
  - DRUG INEFFECTIVE [None]
  - PLASMACYTOMA [None]
  - SPINAL CORD COMPRESSION [None]
